FAERS Safety Report 18568995 (Version 2)
Quarter: 2020Q4

REPORT INFORMATION
  Report Type: Spontaneous
  Country: IT (occurrence: IT)
  Receive Date: 20201202
  Receipt Date: 20201218
  Transmission Date: 20210114
  Serious: Yes (Death)
  Sender: FDA-Public Use
  Company Number: IT-VERTEX PHARMACEUTICALS-2020-023682

PATIENT
  Sex: Female

DRUGS (11)
  1. LEVOTHYROXINE. [Concomitant]
     Active Substance: LEVOTHYROXINE
  2. KALYDECO [Suspect]
     Active Substance: IVACAFTOR
     Indication: CYSTIC FIBROSIS
     Dosage: 150 MG, QD
     Route: 048
     Dates: start: 20190618
  3. RIVOTRIL [Concomitant]
     Active Substance: CLONAZEPAM
  4. LEDERFOLIN [Concomitant]
     Active Substance: LEUCOVORIN CALCIUM
  5. SYMKEVI [Suspect]
     Active Substance: IVACAFTOR\TEZACAFTOR
     Indication: CYSTIC FIBROSIS
     Dosage: 1 DOSAGE FORM, QD
     Route: 048
     Dates: start: 20190618
  6. TAMOXIFEN [Concomitant]
     Active Substance: TAMOXIFEN
  7. CEFTAZIDIME. [Concomitant]
     Active Substance: CEFTAZIDIME
     Route: 042
  8. LEVOFLOXACIN. [Concomitant]
     Active Substance: LEVOFLOXACIN
     Route: 042
  9. CREON [Concomitant]
     Active Substance: PANCRELIPASE AMYLASE\PANCRELIPASE LIPASE\PANCRELIPASE PROTEASE
  10. MEROPENEM. [Concomitant]
     Active Substance: MEROPENEM
     Route: 042
  11. OMEPRAZOLE. [Concomitant]
     Active Substance: OMEPRAZOLE

REACTIONS (2)
  - Respiratory failure [Fatal]
  - Burkholderia cepacia complex infection [Fatal]

NARRATIVE: CASE EVENT DATE: 20201118
